FAERS Safety Report 14434820 (Version 1)
Quarter: 2018Q1

REPORT INFORMATION
  Report Type: Spontaneous
  Country: FR (occurrence: FR)
  Receive Date: 20180125
  Receipt Date: 20180125
  Transmission Date: 20180509
  Serious: Yes (Other)
  Sender: FDA-Public Use
  Company Number: FR-AUROBINDO-AUR-APL-2018-002246

PATIENT
  Age: 36 Year
  Sex: Female

DRUGS (4)
  1. OPTIMIZETTE [Suspect]
     Active Substance: DESOGESTREL
     Indication: CONTRACEPTION
     Dosage: UNK
     Route: 048
     Dates: start: 20171222
  2. PYOSTACINE [Suspect]
     Active Substance: PRISTINAMYCIN
     Indication: SINUSITIS
     Dosage: 4 DF, DAILY
     Route: 048
     Dates: start: 20171222, end: 20171223
  3. SOLUPRED                           /00016201/ [Suspect]
     Active Substance: PREDNISOLONE
     Indication: SINUSITIS
     Dosage: 50 MG, DAILY
     Route: 048
     Dates: start: 20171213, end: 20171217
  4. AMOXICILLIN. [Suspect]
     Active Substance: AMOXICILLIN
     Indication: SINUSITIS
     Dosage: 3 G, DAILY
     Route: 048
     Dates: start: 20171213, end: 20171219

REACTIONS (2)
  - Medication error [Recovered/Resolved]
  - Urticaria [Not Recovered/Not Resolved]

NARRATIVE: CASE EVENT DATE: 20171222
